FAERS Safety Report 18959572 (Version 1)
Quarter: 2021Q1

REPORT INFORMATION
  Report Type: Spontaneous
  Country: NZ (occurrence: NZ)
  Receive Date: 20210302
  Receipt Date: 20210302
  Transmission Date: 20210420
  Serious: Yes (Hospitalization)
  Sender: FDA-Public Use
  Company Number: NZ-PFIZER INC-2021220417

PATIENT
  Age: 75 Year

DRUGS (1)
  1. PALBOCICLIB [Suspect]
     Active Substance: PALBOCICLIB
     Dosage: 125 MG ONCE DAILY, 3 WEEKS ON, 1 WEEK OFF

REACTIONS (1)
  - Diverticulitis intestinal perforated [Unknown]
